FAERS Safety Report 8287614-6 (Version None)
Quarter: 2012Q2

REPORT INFORMATION
  Report Type: 
  Country: None (occurrence: None)
  Receive Date: 20120416
  Receipt Date: 20120410
  Transmission Date: 20120825
  Serious: Yes (Other)
  Sender: FDA-Public Use
  Company Number: PHHY2012BR019674

PATIENT
  Sex: Female
  Weight: 68 kg

DRUGS (6)
  1. SIMVASTATIN [Concomitant]
     Dosage: 1 DF, UNK
     Route: 048
  2. SLOW-K [Concomitant]
  3. ASPIRIN [Concomitant]
  4. OMEPRAZOLE [Concomitant]
     Indication: GASTRIC DISORDER
     Dosage: 2 DF, ONE TABLET IN THE MORNING AND 1 TABLET AT NIGHT
     Route: 048
  5. VERAPAMIL [Concomitant]
  6. FORMOTEROL FUMARATE [Suspect]
     Indication: EMPHYSEMA
     Dosage: 2 DF, 1 INHALATION IN THE MORNING AND 1 INHALATION AT 7:00 P.M

REACTIONS (9)
  - FATIGUE [None]
  - DYSPNOEA [None]
  - DYSPNOEA EXERTIONAL [None]
  - WEIGHT DECREASED [None]
  - EMPHYSEMA [None]
  - CYANOSIS [None]
  - PAIN [None]
  - CHOLELITHIASIS [None]
  - SYNCOPE [None]
